FAERS Safety Report 7198041-7 (Version None)
Quarter: 2010Q4

REPORT INFORMATION
  Report Type: 
  Country: None (occurrence: None)
  Receive Date: 20101227
  Receipt Date: 20101222
  Transmission Date: 20110411
  Serious: Yes (Death, Hospitalization)
  Sender: FDA-Public Use
  Company Number: FR-ROCHE-749667

PATIENT
  Sex: Male
  Weight: 54 kg

DRUGS (6)
  1. CAPECITABINE [Suspect]
     Dosage: DOSE LEVEL: 2500 MG/M2. FREQUENCY: J1-J8.  LAST DOSE PRIOR TO SAE ON 14 DECEMBER 2010.
     Route: 048
     Dates: start: 20101123
  2. BEVACIZUMAB [Suspect]
     Dosage: LAST DOSE PRIOR TO SAE ON 07 DECEMBER 2010.
     Route: 042
     Dates: start: 20101123
  3. OXALIPLATIN [Suspect]
     Dosage: LAST DOSE PRIOR TO SAE ON 07 DECEMBER 2010.
     Route: 042
     Dates: start: 20101123
  4. ACEBUTOLOL [Concomitant]
  5. FLUOXETINE [Concomitant]
  6. SIMVASTATIN [Concomitant]

REACTIONS (1)
  - RENAL FAILURE [None]
